FAERS Safety Report 9233559 (Version 6)
Quarter: 2013Q4

REPORT INFORMATION
  Report Type: Report from Study
  Country: DE (occurrence: DE)
  Receive Date: 20130416
  Receipt Date: 20131029
  Transmission Date: 20140711
  Serious: Yes (Hospitalization)
  Sender: FDA-Public Use
  Company Number: DE-AMGEN-DEUSP2013026304

PATIENT
  Age: 35 Year
  Sex: Male
  Weight: 100 kg

DRUGS (3)
  1. ETANERCEPT [Suspect]
     Indication: RHEUMATOID ARTHRITIS
     Dosage: 50 MG, QWK
     Route: 058
     Dates: start: 20130304, end: 20130404
  2. PREDNISOLONE [Concomitant]
     Dosage: 5-20 MG DAILY
     Route: 048
  3. ARAVA [Concomitant]
     Dosage: 20 MG, 1X/DAY
     Route: 048
     Dates: start: 201108

REACTIONS (3)
  - Pruritus [Recovered/Resolved]
  - Rash [Recovered/Resolved]
  - Cough [Recovered/Resolved]
